FAERS Safety Report 8164105-4 (Version None)
Quarter: 2012Q1

REPORT INFORMATION
  Report Type: 
  Country: None (occurrence: None)
  Receive Date: 20120224
  Receipt Date: 20120117
  Transmission Date: 20120608
  Serious: No
  Sender: FDA-Public Use
  Company Number: US-AMGEN-USASP2012003379

PATIENT
  Age: 20 Year
  Sex: Female

DRUGS (2)
  1. ENBREL [Suspect]
     Indication: PSORIASIS
     Dosage: 50 MG, QWK
     Dates: start: 20070910, end: 20111101
  2. ENBREL [Suspect]
     Indication: ANKYLOSING SPONDYLITIS

REACTIONS (8)
  - SKIN TIGHTNESS [None]
  - MUSCULOSKELETAL STIFFNESS [None]
  - PSORIASIS [None]
  - MUSCLE SPASMS [None]
  - PAIN [None]
  - ARTHRALGIA [None]
  - SKIN DISORDER [None]
  - DRUG INEFFECTIVE [None]
